FAERS Safety Report 9592397 (Version 1)
Quarter: 2013Q4

REPORT INFORMATION
  Report Type: Spontaneous
  Country: FI (occurrence: FI)
  Receive Date: 20131004
  Receipt Date: 20131004
  Transmission Date: 20140711
  Serious: Yes (Hospitalization, Other)
  Sender: FDA-Public Use
  Company Number: FI-JNJFOC-20130915515

PATIENT
  Age: 53 Year
  Sex: Female

DRUGS (3)
  1. REMICADE [Suspect]
     Indication: RHEUMATOID ARTHRITIS
     Route: 042
  2. REMICADE [Suspect]
     Indication: RHEUMATOID ARTHRITIS
     Dosage: RESTARTED AFTER A PAUSE OF 15 WEEKS
     Route: 042
  3. ARAVA [Suspect]
     Indication: RHEUMATOID ARTHRITIS
     Route: 065

REACTIONS (4)
  - Foot operation [Unknown]
  - Impaired healing [Unknown]
  - Tooth fracture [Unknown]
  - Campylobacter infection [Unknown]
